FAERS Safety Report 17540008 (Version 1)
Quarter: 2020Q1

REPORT INFORMATION
  Report Type: Report from Study
  Country: BR (occurrence: BR)
  Receive Date: 20200313
  Receipt Date: 20200313
  Transmission Date: 20200409
  Serious: Yes (Disabling, Other)
  Sender: FDA-Public Use
  Company Number: NVSC2020BR068899

PATIENT
  Age: 79 Year
  Sex: Male

DRUGS (1)
  1. DIOVAN HCT [Suspect]
     Active Substance: HYDROCHLOROTHIAZIDE\VALSARTAN
     Indication: PRODUCT USED FOR UNKNOWN INDICATION
     Dosage: UNK
     Route: 065
     Dates: start: 2015

REACTIONS (9)
  - Neoplasm malignant [Recovering/Resolving]
  - Nervousness [Unknown]
  - Femur fracture [Recovering/Resolving]
  - Cardiac disorder [Unknown]
  - Bedridden [Unknown]
  - Fall [Recovering/Resolving]
  - Gastrointestinal carcinoma [Unknown]
  - Hypertension [Recovering/Resolving]
  - Aphasia [Recovering/Resolving]

NARRATIVE: CASE EVENT DATE: 202003
